FAERS Safety Report 14007450 (Version 1)
Quarter: 2017Q3

REPORT INFORMATION
  Report Type: Spontaneous
  Country: IN (occurrence: IN)
  Receive Date: 20170904
  Receipt Date: 20170904
  Transmission Date: 20171128
  Serious: Yes (Other)
  Sender: FDA-Public Use
  Company Number: None

PATIENT
  Age: 45 Year
  Sex: Male
  Weight: 71 kg

DRUGS (1)
  1. RELISPRAY [Suspect]
     Active Substance: METHYL SALICYLATE
     Indication: MYALGIA
     Route: 061
     Dates: start: 20170823, end: 20170829

REACTIONS (1)
  - Vision blurred [None]

NARRATIVE: CASE EVENT DATE: 20170829
